FAERS Safety Report 19919961 (Version 1)
Quarter: 2021Q4

REPORT INFORMATION
  Report Type: Spontaneous
  Country: US (occurrence: US)
  Receive Date: 20211005
  Receipt Date: 20211005
  Transmission Date: 20220303
  Serious: Yes (Other)
  Sender: FDA-Public Use
  Company Number: US-BAYER-2021A223311

PATIENT
  Age: 27 Year
  Sex: Male

DRUGS (2)
  1. JIVI [Suspect]
     Active Substance: DAMOCTOCOG ALFA PEGOL
     Dosage: 3160 IU, UNK
     Route: 042
  2. JIVI [Suspect]
     Active Substance: DAMOCTOCOG ALFA PEGOL
     Dosage: DOUBLE DOSE INFUSED
     Route: 042
     Dates: start: 20210929, end: 20210929

REACTIONS (3)
  - Traumatic haemorrhage [Recovered/Resolved]
  - Limb injury [None]
  - Nail injury [None]

NARRATIVE: CASE EVENT DATE: 20210929
